FAERS Safety Report 21462510 (Version 1)
Quarter: 2022Q4

REPORT INFORMATION
  Report Type: Report from Study
  Country: US (occurrence: US)
  Receive Date: 20221016
  Receipt Date: 20221016
  Transmission Date: 20230112
  Serious: Yes (Hospitalization, Other)
  Sender: FDA-Public Use
  Company Number: US-ABBVIE-4154584

PATIENT
  Sex: Female

DRUGS (1)
  1. SKYRIZI [Suspect]
     Active Substance: RISANKIZUMAB-RZAA
     Indication: Rheumatoid arthritis
     Route: 058
     Dates: start: 20220630

REACTIONS (6)
  - Tumour haemorrhage [Unknown]
  - Vomiting [Unknown]
  - Syncope [Unknown]
  - Brain neoplasm benign [Unknown]
  - Hypoaesthesia [Unknown]
  - Head discomfort [Unknown]
